FAERS Safety Report 17073043 (Version 1)
Quarter: 2019Q4

REPORT INFORMATION
  Report Type: Report from Study
  Country: US (occurrence: US)
  Receive Date: 20191125
  Receipt Date: 20191125
  Transmission Date: 20200122
  Serious: Yes (Death)
  Sender: FDA-Public Use
  Company Number: US-EXELIXIS-CABO-19022502

PATIENT
  Age: 54 Year
  Sex: Female
  Weight: 52.15 kg

DRUGS (12)
  1. CABOMETYX [Suspect]
     Active Substance: CABOZANTINIB S-MALATE
     Indication: RENAL CELL CARCINOMA
     Dosage: 60 MG, QD
     Route: 048
     Dates: start: 20190704
  2. POLYETHYLENE [Concomitant]
     Active Substance: HIGH DENSITY POLYETHYLENE
  3. AUGMENTIN [Concomitant]
     Active Substance: AMOXICILLIN\CLAVULANATE POTASSIUM
  4. DEXAMETHASONE. [Concomitant]
     Active Substance: DEXAMETHASONE
  5. OMEPRAZOLE. [Concomitant]
     Active Substance: OMEPRAZOLE
  6. FLUTICASONE. [Concomitant]
     Active Substance: FLUTICASONE
  7. OXYCODONE [Concomitant]
     Active Substance: OXYCODONE
  8. FENTANYL. [Concomitant]
     Active Substance: FENTANYL
  9. LIDOCAINE. [Concomitant]
     Active Substance: LIDOCAINE
  10. TIZANIDINE. [Concomitant]
     Active Substance: TIZANIDINE
  11. LEVOFLOXACIN. [Concomitant]
     Active Substance: LEVOFLOXACIN
  12. ALBUTEROL. [Concomitant]
     Active Substance: ALBUTEROL

REACTIONS (6)
  - Constipation [Unknown]
  - Hair colour changes [Unknown]
  - Skin ulcer [Unknown]
  - Stomatitis [Recovered/Resolved]
  - Death [Fatal]
  - Dizziness [Unknown]

NARRATIVE: CASE EVENT DATE: 20190704
